FAERS Safety Report 6239343-8 (Version None)
Quarter: 2009Q2

REPORT INFORMATION
  Report Type: 
  Country: None (occurrence: None)
  Receive Date: 20090618
  Receipt Date: 20090618
  Transmission Date: 20091009
  Serious: Yes (Other)
  Sender: FDA-Public Use
  Company Number: None

PATIENT
  Sex: Female
  Weight: 50.3493 kg

DRUGS (2)
  1. ZICAM ZINC GLUCONATE X2 ZICAM [Suspect]
     Indication: NASOPHARYNGITIS
     Dosage: BOTH NOSTRILS 2 X/DAY 2-DAYS NASAL
     Route: 045
     Dates: start: 20090415, end: 20090417
  2. ZICAM ZINC GLUCONATE X2 ZICAM [Suspect]
     Indication: PROPHYLAXIS
     Dosage: BOTH NOSTRILS 2 X/DAY 2-DAYS NASAL
     Route: 045
     Dates: start: 20090415, end: 20090417

REACTIONS (2)
  - AGEUSIA [None]
  - ANOSMIA [None]
